FAERS Safety Report 23382659 (Version 2)
Quarter: 2024Q1

REPORT INFORMATION
  Report Type: Spontaneous
  Country: CA (occurrence: CA)
  Receive Date: 20240109
  Receipt Date: 20240301
  Transmission Date: 20240410
  Serious: Yes (Other)
  Sender: FDA-Public Use
  Company Number: CA-PFIZER INC-202400001177

PATIENT
  Age: 1 Year
  Sex: Female
  Weight: 6.4 kg

DRUGS (1)
  1. SOMATROPIN [Suspect]
     Active Substance: SOMATROPIN
     Indication: Prader-Willi syndrome
     Dosage: 200 UG, 1X/DAY
     Route: 058
     Dates: start: 20230214

REACTIONS (3)
  - Sleep apnoea syndrome [Not Recovered/Not Resolved]
  - Adenoidal hypertrophy [Not Recovered/Not Resolved]
  - Nasopharyngitis [Unknown]

NARRATIVE: CASE EVENT DATE: 20230101
